FAERS Safety Report 11410334 (Version 1)
Quarter: 2015Q3

REPORT INFORMATION
  Report Type: Report from Study
  Country: US (occurrence: US)
  Receive Date: 20150824
  Receipt Date: 20150824
  Transmission Date: 20151125
  Serious: No
  Sender: FDA-Public Use
  Company Number: US-AMGEN-USASP2015084645

PATIENT
  Age: 39 Year
  Sex: Female

DRUGS (1)
  1. ENBREL [Suspect]
     Active Substance: ETANERCEPT
     Indication: RHEUMATOID ARTHRITIS
     Dosage: 50 MG, QWK
     Route: 065
     Dates: start: 201309

REACTIONS (9)
  - Pain [Recovered/Resolved]
  - Blood test abnormal [Unknown]
  - Condition aggravated [Recovering/Resolving]
  - Malaise [Recovering/Resolving]
  - Vision blurred [Recovering/Resolving]
  - Headache [Recovered/Resolved]
  - Pain in extremity [Recovering/Resolving]
  - Dizziness [Recovered/Resolved]
  - Fatigue [Recovering/Resolving]
